FAERS Safety Report 16070609 (Version 4)
Quarter: 2019Q2

REPORT INFORMATION
  Report Type: Spontaneous
  Country: JP (occurrence: JP)
  Receive Date: 20190314
  Receipt Date: 20190612
  Transmission Date: 20190711
  Serious: Yes (Other)
  Sender: FDA-Public Use
  Company Number: JP-009507513-1903JPN000498J

PATIENT
  Age: 61 Year
  Sex: Female
  Weight: 60 kg

DRUGS (1)
  1. KEYTRUDA [Suspect]
     Active Substance: PEMBROLIZUMAB
     Indication: TRANSITIONAL CELL CARCINOMA
     Dosage: 200 MILLIGRAM, EVERY 4 WEEKS
     Route: 041
     Dates: start: 20180821

REACTIONS (15)
  - Scab [Recovering/Resolving]
  - Haemorrhage subcutaneous [Unknown]
  - Lipohypertrophy [Unknown]
  - Rash [Unknown]
  - Diarrhoea [Unknown]
  - Weight increased [Unknown]
  - Increased appetite [Unknown]
  - Visual field defect [Recovered/Resolved]
  - Feeling abnormal [Unknown]
  - Obesity [Unknown]
  - Inappropriate schedule of product administration [Unknown]
  - Constipation [Unknown]
  - Hyperhidrosis [Unknown]
  - Polymyalgia rheumatica [Not Recovered/Not Resolved]
  - Cushingoid [Unknown]

NARRATIVE: CASE EVENT DATE: 201810
